FAERS Safety Report 8763983 (Version 1)
Quarter: 2012Q4

REPORT INFORMATION
  Report Type: Report from Study
  Country: FR (occurrence: FR)
  Receive Date: 20120831
  Receipt Date: 20120831
  Transmission Date: 20130627
  Serious: Yes (Hospitalization)
  Sender: FDA-Public Use
  Company Number: FR-PFIZER INC-2012206576

PATIENT
  Age: 76 Year
  Sex: Female

DRUGS (14)
  1. AROMASINE [Suspect]
     Indication: BREAST CANCER
     Dosage: 25 mg, 1x/day
     Route: 048
     Dates: start: 20090227, end: 20091008
  2. DASATINIB [Suspect]
     Indication: BREAST CANCER
     Dosage: 100 mg, 1x/day
     Route: 048
     Dates: start: 20090227, end: 20091008
  3. METFORMIN [Concomitant]
     Dosage: UNK
     Dates: start: 20041231
  4. ATORVASTATIN CALCIUM [Concomitant]
     Dosage: UNK
     Dates: start: 20061231, end: 20091008
  5. FLUOXETINE HYDROCHLORIDE [Concomitant]
     Dosage: UNK
     Dates: start: 20021231
  6. ACEBUTOLOL HYDROCHLORIDE [Concomitant]
     Dosage: UNK
     Dates: start: 19891231
  7. LEVOTHYROXINE SODIUM [Concomitant]
     Dosage: UNK
     Dates: start: 20041231
  8. DIOSMIN [Concomitant]
     Dosage: UNK
     Dates: start: 20071231, end: 20091008
  9. GELOX [Concomitant]
     Dosage: UNK
     Dates: start: 20090402
  10. LOPERAMIDE [Concomitant]
     Dosage: UNK
     Dates: start: 20090410, end: 20091006
  11. IXPRIM [Concomitant]
     Dosage: UNK
     Dates: start: 20090410
  12. IDROCILAMIDE [Concomitant]
     Dosage: UNK
     Dates: start: 20090410
  13. METEOXANE [Concomitant]
     Dosage: UNK
     Dates: start: 20090728
  14. INNOHEP [Concomitant]
     Dosage: UNK
     Dates: start: 20091008

REACTIONS (2)
  - Phlebitis [Recovered/Resolved with Sequelae]
  - Pulmonary embolism [Recovered/Resolved with Sequelae]
